FAERS Safety Report 8562373 (Version 4)
Quarter: 2013Q2

REPORT INFORMATION
  Report Type: Spontaneous
  Country: US (occurrence: US)
  Receive Date: 20120515
  Receipt Date: 20130408
  Transmission Date: 20140414
  Serious: Yes (Hospitalization)
  Sender: FDA-Public Use
  Company Number: US-BAYER-2012-046802

PATIENT
  Age: 22 Year
  Sex: Female
  Weight: 89.8 kg

DRUGS (3)
  1. OCELLA [Suspect]
     Indication: CONTRACEPTION
     Dosage: UNK
     Dates: start: 20090805, end: 20091013
  2. OCELLA [Suspect]
     Indication: MENSTRUATION IRREGULAR
  3. YASMIN [Suspect]
     Indication: CONTRACEPTION
     Dosage: UNK
     Dates: start: 20050715, end: 20051011

REACTIONS (9)
  - Pulmonary embolism [None]
  - Injury [None]
  - Pain [None]
  - Emotional distress [None]
  - Anxiety [None]
  - General physical health deterioration [None]
  - Exercise tolerance decreased [None]
  - Dyspnoea [None]
  - Chest pain [None]
